FAERS Safety Report 10861685 (Version 3)
Quarter: 2015Q2

REPORT INFORMATION
  Report Type: Spontaneous
  Country: US (occurrence: US)
  Receive Date: 20150224
  Receipt Date: 20150626
  Transmission Date: 20150821
  Serious: Yes (Hospitalization, Other)
  Sender: FDA-Public Use
  Company Number: US-BAYER-2015-024126

PATIENT
  Age: 12 Year
  Sex: Male

DRUGS (3)
  1. KOGENATE FS [Suspect]
     Active Substance: ANTIHEMOPHILIC FACTOR, HUMAN RECOMBINANT
     Indication: FACTOR VIII DEFICIENCY
     Dosage: PRN MINOR BLEEDS
     Route: 042
  2. KOGENATE FS [Suspect]
     Active Substance: ANTIHEMOPHILIC FACTOR, HUMAN RECOMBINANT
     Indication: FACTOR VIII DEFICIENCY
     Dosage: 1200 U, TIW PROPHY AND DAILY
     Route: 042
  3. KOGENATE FS [Suspect]
     Active Substance: ANTIHEMOPHILIC FACTOR, HUMAN RECOMBINANT
     Indication: FACTOR VIII DEFICIENCY
     Dosage: 1181 U, TIW
     Route: 042

REACTIONS (6)
  - Muscle contusion [None]
  - Renal haemorrhage [Recovered/Resolved]
  - Drug dose omission [None]
  - Muscle haemorrhage [Recovered/Resolved]
  - Treatment noncompliance [None]
  - Fall [None]

NARRATIVE: CASE EVENT DATE: 20150322
